FAERS Safety Report 12784061 (Version 5)
Quarter: 2017Q4

REPORT INFORMATION
  Report Type: Report from Study
  Country: JP (occurrence: JP)
  Receive Date: 20160927
  Receipt Date: 20171107
  Transmission Date: 20180320
  Serious: Yes (Other)
  Sender: FDA-Public Use
  Company Number: JP-VIFOR (INTERNATIONAL) INC.-VIT-2016-05499

PATIENT
  Age: 69 Year
  Sex: Male
  Weight: 70.8 kg

DRUGS (22)
  1. NEUROTROPIN [Concomitant]
     Active Substance: NEUROTROPIN
     Route: 065
  2. PENTCILLIN [Concomitant]
     Active Substance: PIPERACILLIN SODIUM
     Indication: BLOOD PRESSURE INCREASED
     Dates: start: 20161112, end: 20161124
  3. TRAZENTA [Concomitant]
     Active Substance: LINAGLIPTIN
     Route: 048
     Dates: start: 20161209
  4. EPOETIN ALFA [Suspect]
     Active Substance: ERYTHROPOIETIN
     Indication: PRODUCT USED FOR UNKNOWN INDICATION
     Route: 042
     Dates: start: 20160609
  5. CALCIUM CARBONATE. [Concomitant]
     Active Substance: CALCIUM CARBONATE
     Indication: HYPERPHOSPHATAEMIA
     Route: 048
  6. REMITCH [Concomitant]
     Active Substance: NALFURAFINE HYDROCHLORIDE
     Route: 048
  7. LAXOBERON [Concomitant]
     Active Substance: SODIUM PICOSULFATE
     Route: 048
     Dates: start: 20170303
  8. CARDENALIN [Concomitant]
     Active Substance: DOXAZOSIN MESYLATE
     Route: 048
     Dates: start: 20160908, end: 20161013
  9. VELPHORO [Suspect]
     Active Substance: FERRIC OXYHYDROXIDE
     Indication: HYPERPHOSPHATAEMIA
     Route: 048
     Dates: start: 20160519
  10. NESP [Suspect]
     Active Substance: DARBEPOETIN ALFA
     Indication: PRODUCT USED FOR UNKNOWN INDICATION
     Route: 048
     Dates: start: 20160419, end: 20160609
  11. LAXOBERON [Concomitant]
     Active Substance: SODIUM PICOSULFATE
     Route: 048
     Dates: end: 20170228
  12. ADALAT [Concomitant]
     Active Substance: NIFEDIPINE
     Route: 048
     Dates: end: 20160907
  13. ADALAT [Concomitant]
     Active Substance: NIFEDIPINE
     Route: 048
     Dates: start: 20160908
  14. PURSENNID [Concomitant]
     Active Substance: SENNOSIDES A AND B
     Route: 048
  15. METLIGINE [Concomitant]
     Active Substance: MIDODRINE HYDROCHLORIDE
     Route: 048
  16. NU-LOTAN [Concomitant]
     Active Substance: LOSARTAN POTASSIUM
     Route: 048
  17. WYTENS [Concomitant]
     Active Substance: GUANABENZ ACETATE
     Route: 048
  18. CARDENALIN [Concomitant]
     Active Substance: DOXAZOSIN MESYLATE
     Route: 048
     Dates: start: 20161013
  19. LASIX [Concomitant]
     Active Substance: FUROSEMIDE
     Route: 048
  20. HUMALOG [Concomitant]
     Active Substance: INSULIN LISPRO
     Dates: end: 20161209
  21. LASIX [Concomitant]
     Active Substance: FUROSEMIDE
     Route: 048
  22. HISHIPHAGEN C [Concomitant]
     Route: 042

REACTIONS (3)
  - Blood pressure increased [Recovering/Resolving]
  - Arteriosclerosis [Recovered/Resolved]
  - Blood creatine phosphokinase increased [Recovered/Resolved]

NARRATIVE: CASE EVENT DATE: 20160804
